FAERS Safety Report 13920929 (Version 2)
Quarter: 2017Q3

REPORT INFORMATION
  Report Type: Report from Study
  Country: FR (occurrence: FR)
  Receive Date: 20170830
  Receipt Date: 20170905
  Transmission Date: 20171127
  Serious: Yes (Hospitalization)
  Sender: FDA-Public Use
  Company Number: FR-VELOXIS PHARMACEUTICALS-2025304

PATIENT
  Age: 75 Year
  Weight: 84.18 kg

DRUGS (24)
  1. BISOPROLOL FUMARATE. [Concomitant]
     Active Substance: BISOPROLOL FUMARATE
     Dates: start: 201401
  2. NOVONORM [Concomitant]
     Active Substance: REPAGLINIDE
     Dates: start: 20150213
  3. OXYCONTIN [Concomitant]
     Active Substance: OXYCODONE HYDROCHLORIDE
  4. PROGRAF [Concomitant]
     Active Substance: TACROLIMUS\TACROLIMUS ANHYDROUS
     Dates: start: 201401
  5. ISOPHANE INSULIN [Concomitant]
     Active Substance: INSULIN NOS
     Dates: start: 20150504, end: 201707
  6. AMLOR [Concomitant]
     Active Substance: AMLODIPINE BESYLATE
     Dates: start: 20141104
  7. UVEDOSE [Concomitant]
     Active Substance: CHOLECALCIFEROL
     Dates: start: 20170127
  8. PROGRAF [Concomitant]
     Active Substance: TACROLIMUS\TACROLIMUS ANHYDROUS
     Dates: start: 20140111, end: 201401
  9. ATORVASTATINE [Concomitant]
     Active Substance: ATORVASTATIN
     Dates: start: 201707
  10. ENVARSUS XR [Suspect]
     Active Substance: TACROLIMUS
     Route: 048
     Dates: start: 20170731
  11. ENVARSUS XR [Suspect]
     Active Substance: TACROLIMUS
     Indication: PROPHYLAXIS AGAINST TRANSPLANT REJECTION
     Route: 048
     Dates: start: 20170624, end: 20170730
  12. INEXIUM [Concomitant]
     Active Substance: ESOMEPRAZOLE
     Dates: start: 20140318
  13. NEURONTIN [Concomitant]
     Active Substance: GABAPENTIN
     Dates: start: 20170103, end: 201707
  14. CELLCEPT [Concomitant]
     Active Substance: MYCOPHENOLATE MOFETIL\MYCOPHENOLATE MOFETIL HYDROCHLORIDE
     Dates: start: 20140110
  15. KARDEGIC [Concomitant]
     Active Substance: ASPIRIN LYSINE
  16. ARANESP [Concomitant]
     Active Substance: DARBEPOETIN ALFA
     Dates: start: 20150213, end: 201707
  17. TAHOR [Concomitant]
     Active Substance: ATORVASTATIN CALCIUM
     Dates: start: 20140506
  18. LEXOMIL [Concomitant]
     Active Substance: BROMAZEPAM
     Dates: start: 20170623
  19. ISOPHANE INSULIN [Concomitant]
     Active Substance: INSULIN NOS
     Dates: start: 201707
  20. ADVAGRAF [Concomitant]
     Active Substance: TACROLIMUS
     Dates: start: 20170709
  21. LASILIX [Concomitant]
     Active Substance: FUROSEMIDE
     Dates: start: 20150504
  22. OXYNORM [Concomitant]
     Active Substance: OXYCODONE HYDROCHLORIDE
  23. DORNORMYL [Concomitant]
     Dates: start: 20170623
  24. NEURONTIN [Concomitant]
     Active Substance: GABAPENTIN
     Dates: start: 201707

REACTIONS (3)
  - Ischaemic stroke [Recovered/Resolved with Sequelae]
  - Paraesthesia [Recovered/Resolved with Sequelae]
  - Dysaesthesia [Recovered/Resolved with Sequelae]

NARRATIVE: CASE EVENT DATE: 20170712
